FAERS Safety Report 13742242 (Version 1)
Quarter: 2017Q3

REPORT INFORMATION
  Report Type: Spontaneous
  Country: US (occurrence: US)
  Receive Date: 20170711
  Receipt Date: 20170711
  Transmission Date: 20171127
  Serious: No
  Sender: FDA-Public Use
  Company Number: US-BAYER-2017-132440

PATIENT
  Age: 82 Year
  Sex: Female
  Weight: 81 kg

DRUGS (3)
  1. ULTRAM [Concomitant]
     Active Substance: TRAMADOL HYDROCHLORIDE
     Dosage: UNK
  2. BAYER LOW DOSE [Suspect]
     Active Substance: ASPIRIN
     Indication: ANTIPLATELET THERAPY
     Dosage: UNK
  3. MIRALAX [Suspect]
     Active Substance: POLYETHYLENE GLYCOL 3350
     Indication: GASTROINTESTINAL DISORDER
     Dosage: ;17G IN 8 OUNCES OF WATER DOSE
     Route: 048
     Dates: start: 20170628, end: 20170710

REACTIONS (5)
  - Product use in unapproved indication [None]
  - Drug ineffective [Unknown]
  - Off label use [None]
  - Gastrointestinal motility disorder [Unknown]
  - Incorrect drug administration duration [Unknown]

NARRATIVE: CASE EVENT DATE: 20170628
